FAERS Safety Report 6738473-1 (Version None)
Quarter: 2010Q2

REPORT INFORMATION
  Report Type: 
  Country: None (occurrence: None)
  Receive Date: 20100524
  Receipt Date: 20100511
  Transmission Date: 20101027
  Serious: Yes (Disabling, Other)
  Sender: FDA-Public Use
  Company Number: PHHY2010JP30700

PATIENT
  Age: 55 Year
  Sex: Female

DRUGS (1)
  1. ZOMETA [Suspect]
     Indication: METASTASES TO BONE
     Route: 042

REACTIONS (6)
  - JAW FRACTURE [None]
  - MALIGNANT NEOPLASM PROGRESSION [None]
  - OSTEONECROSIS OF JAW [None]
  - PAIN [None]
  - SEQUESTRECTOMY [None]
  - WOUND DRAINAGE [None]
